FAERS Safety Report 6872250-6 (Version None)
Quarter: 2010Q3

REPORT INFORMATION
  Report Type: 
  Country: None (occurrence: None)
  Receive Date: 20100723
  Receipt Date: 20100719
  Transmission Date: 20110219
  Serious: Yes (Death, Hospitalization, Other)
  Sender: FDA-Public Use
  Company Number: US-ABBOTT-10P-163-0657994-00

PATIENT
  Sex: Male
  Weight: 78.996 kg

DRUGS (6)
  1. NORVIR [Suspect]
     Indication: HIV INFECTION
  2. KALETRA [Suspect]
     Indication: HIV INFECTION
     Dosage: 200/50, 2 IN 2 DAYS
     Dates: start: 20100630, end: 20100719
  3. NEPHRON [Concomitant]
     Indication: PRODUCT USED FOR UNKNOWN INDICATION
  4. BIAXIN [Concomitant]
     Indication: PRODUCT USED FOR UNKNOWN INDICATION
  5. TRUVADA [Concomitant]
     Indication: HIV INFECTION
  6. LEXIVA [Concomitant]
     Indication: HIV INFECTION

REACTIONS (10)
  - ANAEMIA [None]
  - CD4 LYMPHOCYTES INCREASED [None]
  - CHEST PAIN [None]
  - DRUG DOSE OMISSION [None]
  - ENCEPHALITIC INFECTION [None]
  - HIV INFECTION [None]
  - OEDEMA PERIPHERAL [None]
  - TABLET ISSUE [None]
  - TREATMENT NONCOMPLIANCE [None]
  - VIRAL LOAD INCREASED [None]
